FAERS Safety Report 20720932 (Version 1)
Quarter: 2022Q2

REPORT INFORMATION
  Report Type: Report from Study
  Country: KR (occurrence: None)
  Receive Date: 20220418
  Receipt Date: 20220418
  Transmission Date: 20220720
  Serious: Yes (Hospitalization)
  Sender: FDA-Public Use
  Company Number: KR-ROCHE-3074766

PATIENT
  Age: 75 Year
  Sex: Female
  Weight: 48.3 kg

DRUGS (13)
  1. CLONAZEPAM [Suspect]
     Active Substance: CLONAZEPAM
     Indication: Insomnia
     Route: 048
     Dates: start: 20220124, end: 20220219
  2. SASANLIMAB [Suspect]
     Active Substance: SASANLIMAB
     Indication: Bladder cancer
     Route: 065
     Dates: start: 20210512, end: 20211123
  3. BCG VACCINE [Suspect]
     Active Substance: BCG VACCINE
     Indication: Bladder cancer
     Route: 043
     Dates: start: 20210518
  4. GEMIGLIPTIN\METFORMIN [Suspect]
     Active Substance: GEMIGLIPTIN\METFORMIN
     Indication: Diabetes mellitus
     Route: 065
     Dates: start: 20211117, end: 20220219
  5. ATORVASTATIN CALCIUM\EZETIMIBE [Suspect]
     Active Substance: ATORVASTATIN CALCIUM\EZETIMIBE
     Indication: Hypertension
     Route: 048
     Dates: start: 20211117, end: 20220217
  6. MELATONIN [Suspect]
     Active Substance: MELATONIN
     Indication: Insomnia
     Route: 065
     Dates: start: 20211216, end: 20220219
  7. ZOLPIDEM TARTRATE [Suspect]
     Active Substance: ZOLPIDEM TARTRATE
     Indication: Insomnia
     Route: 048
     Dates: start: 20211216, end: 20220219
  8. TRESIBA [Concomitant]
     Active Substance: INSULIN DEGLUDEC
     Dates: start: 20211117
  9. LEVACALM [Concomitant]
     Dates: start: 20211117
  10. TRAZODONE HYDROCHLORIDE [Concomitant]
     Active Substance: TRAZODONE HYDROCHLORIDE
     Dates: start: 20220124
  11. URSODIOL [Concomitant]
     Active Substance: URSODIOL
     Dates: start: 20220217
  12. ZOLPID [Concomitant]
     Route: 048
     Dates: start: 20220124, end: 20220203
  13. LEVOTHYROXINE SODIUM [Concomitant]
     Active Substance: LEVOTHYROXINE SODIUM
     Dates: start: 20211101

REACTIONS (1)
  - Hepatitis acute [Recovered/Resolved]

NARRATIVE: CASE EVENT DATE: 20220217
